FAERS Safety Report 5300061-1 (Version None)
Quarter: 2007Q2

REPORT INFORMATION
  Report Type: 
  Country: None (occurrence: None)
  Receive Date: 20070410
  Receipt Date: 20070326
  Transmission Date: 20071010
  Serious: Yes (Disabling)
  Sender: FDA-Public Use
  Company Number: B0459125A

PATIENT
  Age: 51 Year
  Sex: Male

DRUGS (6)
  1. PAXIL [Suspect]
     Indication: MAJOR DEPRESSION
     Dosage: ORAL
     Route: 048
     Dates: start: 20050101, end: 20051026
  2. MILNACIPRAN HYDROCHLORIDE (FORMULATION UNKNOWN) (MILNACIPRAN HYDROCHLO [Suspect]
     Indication: MAJOR DEPRESSION
     Dosage: 25 MG FOUR TIMES PER DAY
     Dates: start: 20050414, end: 20051026
  3. TRAZODONE HCL [Suspect]
     Dosage: PER DAY ORAL
     Route: 048
     Dates: start: 20050327, end: 20051028
  4. QUETIAPINE FUMARATE [Concomitant]
  5. BROTIZOLAM [Concomitant]
  6. FLUNITRAZEPAM [Concomitant]

REACTIONS (8)
  - DELUSION OF REFERENCE [None]
  - DEPRESSED MOOD [None]
  - ELEVATED MOOD [None]
  - EUPHORIC MOOD [None]
  - INSOMNIA [None]
  - LOGORRHOEA [None]
  - MANIA [None]
  - PSYCHOMOTOR HYPERACTIVITY [None]
